FAERS Safety Report 9991752 (Version 3)
Quarter: 2014Q2

REPORT INFORMATION
  Report Type: Spontaneous
  Country: TR (occurrence: TR)
  Receive Date: 20140310
  Receipt Date: 20140414
  Transmission Date: 20141212
  Serious: Yes (Hospitalization, Other)
  Sender: FDA-Public Use
  Company Number: TR-VERTEX PHARMACEUTICALS INC-2014-001153

PATIENT
  Age: 65 Year
  Sex: Female

DRUGS (8)
  1. INCIVO [Suspect]
     Indication: CHRONIC HEPATITIS C
     Dosage: 750 MG, TID
     Route: 048
     Dates: start: 20130117
  2. PEGINTERFERON ALFA-2A [Suspect]
     Indication: CHRONIC HEPATITIS C
     Dosage: 135 ?G, QW
     Route: 058
     Dates: end: 20130711
  3. PEGINTERFERON ALFA-2A [Suspect]
     Dosage: 180 ?G, QW
     Route: 058
     Dates: start: 20130117
  4. RIBAVIRIN [Suspect]
     Indication: CHRONIC HEPATITIS C
     Dosage: 600 MG, QD
  5. RIBAVIRIN [Suspect]
     Dosage: 400 MG, QD
  6. RIBAVIRIN [Suspect]
     Dosage: 1000 MG, QD
     Route: 048
     Dates: start: 20130117
  7. RIBAVIRIN [Suspect]
     Dosage: 800 MG, QD
     Route: 048
  8. RIBAVIRIN [Suspect]
     Dosage: 600 MG, QD
     Route: 048
     Dates: end: 20130711

REACTIONS (8)
  - Adverse drug reaction [Unknown]
  - White blood cell count decreased [Recovering/Resolving]
  - Asthenia [Recovered/Resolved]
  - Syncope [Recovered/Resolved]
  - Anaemia [Recovering/Resolving]
  - Pyrexia [Unknown]
  - Myalgia [Recovered/Resolved]
  - Decreased appetite [Recovered/Resolved]
